FAERS Safety Report 18645945 (Version 1)
Quarter: 2020Q4

REPORT INFORMATION
  Report Type: Spontaneous
  Country: US (occurrence: US)
  Receive Date: 20201222
  Receipt Date: 20201222
  Transmission Date: 20210114
  Serious: Yes (Other)
  Sender: FDA-Public Use
  Company Number: US-BRISTOL-MYERS SQUIBB COMPANY-BMS-2020-107535

PATIENT
  Sex: Female
  Weight: 73 kg

DRUGS (1)
  1. ELIQUIS [Suspect]
     Active Substance: APIXABAN
     Indication: THROMBOSIS PROPHYLAXIS
     Dosage: 5 MILLIGRAM, BID
     Route: 048
     Dates: start: 2020

REACTIONS (5)
  - Neuropathy peripheral [Unknown]
  - Impaired healing [Unknown]
  - Rash [Unknown]
  - Neoplasm malignant [Unknown]
  - Skin ulcer [Unknown]
